FAERS Safety Report 8697188 (Version 2)
Quarter: 2012Q4

REPORT INFORMATION
  Report Type: 
  Country: PH (occurrence: PH)
  Receive Date: 20120801
  Receipt Date: 20121228
  Transmission Date: 20130627
  Serious: Yes (Hospitalization)
  Sender: FDA-Public Use
  Company Number: PH-ASTRAZENECA-2012SE51475

PATIENT
  Age: 46 Year
  Sex: Male
  Weight: 67.5 kg

DRUGS (4)
  1. VIMOVO [Suspect]
     Indication: BACK PAIN
     Dosage: 500/20 MG, TWO TIMES A DAY
     Route: 048
     Dates: start: 20120703, end: 20120710
  2. VIMOVO [Suspect]
     Indication: PAIN
     Dosage: 500/20 MG, TWO TIMES A DAY
     Route: 048
     Dates: start: 20120703, end: 20120710
  3. OXYCONTIN [Concomitant]
     Indication: PAIN
     Route: 048
     Dates: start: 20120703
  4. LYRICA [Concomitant]
     Indication: PAIN
     Route: 048
     Dates: start: 20120703

REACTIONS (2)
  - Renal tubular disorder [Unknown]
  - Hyperkalaemia [Recovered/Resolved]
